FAERS Safety Report 5527351-1 (Version None)
Quarter: 2007Q4

REPORT INFORMATION
  Report Type: 
  Country: None (occurrence: None)
  Receive Date: 20071128
  Receipt Date: 20071122
  Transmission Date: 20080405
  Serious: Yes (Death, Congenital Anomaly)
  Sender: FDA-Public Use
  Company Number: B0497085A

PATIENT
  Sex: Male
  Weight: 0.7 kg

DRUGS (2)
  1. AMOXICILLIN [Suspect]
     Dosage: 1G TWICE PER DAY
     Dates: start: 20060616, end: 20060707
  2. NOROXIN [Suspect]
     Dosage: 400MG TWICE PER DAY
     Dates: start: 20060616, end: 20060707

REACTIONS (3)
  - ABORTION INDUCED [None]
  - DRUG EXPOSURE DURING PREGNANCY [None]
  - SPINA BIFIDA [None]
